FAERS Safety Report 18132476 (Version 3)
Quarter: 2020Q4

REPORT INFORMATION
  Report Type: Spontaneous
  Country: US (occurrence: US)
  Receive Date: 20200811
  Receipt Date: 20201123
  Transmission Date: 20210113
  Serious: Yes (Hospitalization, Other)
  Sender: FDA-Public Use
  Company Number: US-GW PHARMA-202007USGW02495

PATIENT

DRUGS (15)
  1. COLACE [Concomitant]
     Active Substance: DOCUSATE SODIUM
     Indication: PRODUCT USED FOR UNKNOWN INDICATION
     Dosage: UNK, DAILY
     Route: 048
  2. DIASTAT [DIAZEPAM] [Concomitant]
     Indication: SEIZURE
     Dosage: UNK
     Route: 054
  3. CALCIUM [Concomitant]
     Active Substance: CALCIUM
     Indication: PRODUCT USED FOR UNKNOWN INDICATION
     Dosage: UNK, DAILY
     Route: 048
  4. PRILOSEC [Concomitant]
     Active Substance: OMEPRAZOLE MAGNESIUM
     Indication: PRODUCT USED FOR UNKNOWN INDICATION
     Dosage: 20 MILLIGRAM, QD
     Route: 048
  5. EPIDIOLEX [Suspect]
     Active Substance: CANNABIDIOL
     Dosage: 650 MILLIGRAM, BID
     Route: 048
  6. KLONOPIN [Concomitant]
     Active Substance: CLONAZEPAM
     Indication: SEIZURE
     Dosage: UNK
     Route: 048
  7. EPIDIOLEX [Suspect]
     Active Substance: CANNABIDIOL
     Indication: LENNOX-GASTAUT SYNDROME
     Dosage: 700 MILLIGRAM, BID
     Route: 048
     Dates: start: 20191113
  8. EPIDIOLEX [Suspect]
     Active Substance: CANNABIDIOL
     Dosage: 550 MILLIGRAM, BID
     Route: 048
  9. HYDRALAZINE [Concomitant]
     Active Substance: HYDRALAZINE HYDROCHLORIDE
     Indication: PRODUCT USED FOR UNKNOWN INDICATION
     Dosage: UNK
     Route: 048
  10. KLONOPIN [Concomitant]
     Active Substance: CLONAZEPAM
     Dosage: 1 MILLIGRAM, TID
     Route: 048
  11. CARBAMAZEPINE. [Concomitant]
     Active Substance: CARBAMAZEPINE
     Indication: SEIZURE
     Dosage: UNK
     Route: 065
  12. DEPAKOTE [Concomitant]
     Active Substance: DIVALPROEX SODIUM
     Indication: SEIZURE
     Dosage: 7 DOSAGE FORM (CAPSULES), TID
     Route: 048
  13. MULTIVITAMINS [VITAMINS NOS] [Concomitant]
     Active Substance: VITAMINS
     Indication: PRODUCT USED FOR UNKNOWN INDICATION
     Dosage: UNK
     Route: 048
  14. ATIVAN [Concomitant]
     Active Substance: LORAZEPAM
     Indication: SEIZURE
     Dosage: 1 MILLIGRAM, PRN
     Route: 048
  15. DIASTAT [DIAZEPAM] [Concomitant]
     Dosage: 20 MILLIGRAM, PRN
     Route: 054

REACTIONS (3)
  - Seizure [Unknown]
  - Seizure [Not Recovered/Not Resolved]
  - Reaction to excipient [Unknown]

NARRATIVE: CASE EVENT DATE: 2020
